FAERS Safety Report 11441857 (Version 1)
Quarter: 2015Q3

REPORT INFORMATION
  Report Type: Spontaneous
  Country: US (occurrence: US)
  Receive Date: 20150901
  Receipt Date: 20150901
  Transmission Date: 20151125
  Serious: No
  Sender: FDA-Public Use
  Company Number: US-ASTRAZENECA-2015SE81178

PATIENT
  Sex: Male
  Weight: 147.9 kg

DRUGS (5)
  1. BYDUREON [Suspect]
     Active Substance: EXENATIDE
     Indication: TYPE 2 DIABETES MELLITUS
     Route: 058
     Dates: end: 201404
  2. NOVOLOG [Concomitant]
     Active Substance: INSULIN ASPART
     Dosage: 8, AFTER MEALS
     Dates: start: 20150602
  3. METFORMIN [Concomitant]
     Active Substance: METFORMIN HYDROCHLORIDE
  4. LEVEMIR [Concomitant]
     Active Substance: INSULIN DETEMIR
     Dosage: TWO TIMES A DAY
     Dates: start: 20150602
  5. BYDUREON [Suspect]
     Active Substance: EXENATIDE
     Indication: TYPE 2 DIABETES MELLITUS
     Route: 058

REACTIONS (5)
  - Blood corticotrophin decreased [Unknown]
  - Underdose [Unknown]
  - Blood lactic acid increased [Unknown]
  - Weight decreased [Recovered/Resolved]
  - Dehydroepiandrosterone decreased [Unknown]
